FAERS Safety Report 18711591 (Version 1)
Quarter: 2021Q1

REPORT INFORMATION
  Report Type: Spontaneous
  Country: US (occurrence: US)
  Receive Date: 20210106
  Receipt Date: 20210106
  Transmission Date: 20210419
  Serious: Yes (Hospitalization, Other)
  Sender: FDA-Public Use
  Company Number: None

PATIENT

DRUGS (1)
  1. SANELL HAND SANITIZER [Suspect]
     Active Substance: ALCOHOL

REACTIONS (4)
  - Rash macular [None]
  - Application site pruritus [None]
  - Anaphylactic reaction [None]
  - Application site erythema [None]
